FAERS Safety Report 4477752-8 (Version None)
Quarter: 2004Q4

REPORT INFORMATION
  Report Type: 
  Country: None (occurrence: None)
  Receive Date: 20041014
  Receipt Date: 20040928
  Transmission Date: 20050328
  Serious: Yes (Hospitalization)
  Sender: FDA-Public Use
  Company Number: 2004-BP-08811RO

PATIENT
  Age: 41 Year
  Sex: Female

DRUGS (1)
  1. METHADONE HCL [Suspect]

REACTIONS (3)
  - BLOOD MAGNESIUM DECREASED [None]
  - ELECTROCARDIOGRAM QT PROLONGED [None]
  - TORSADE DE POINTES [None]
